FAERS Safety Report 5722839-2 (Version None)
Quarter: 2008Q2

REPORT INFORMATION
  Report Type: 
  Country: None (occurrence: None)
  Receive Date: 20080429
  Receipt Date: 20071227
  Transmission Date: 20081010
  Serious: Yes (Other)
  Sender: FDA-Public Use
  Company Number: US-ASTRAZENECA-2007UW29006

PATIENT
  Age: 35 Year
  Sex: Female
  Weight: 56.7 kg

DRUGS (1)
  1. NEXIUM [Suspect]
     Indication: GASTRIC PH DECREASED
     Dosage: 40 MG AT 12 A.M. AND 40 MG AT 8 A.M.
     Route: 048

REACTIONS (5)
  - CONFUSIONAL STATE [None]
  - DRY MOUTH [None]
  - HYPERHIDROSIS [None]
  - RASH GENERALISED [None]
  - SOMNOLENCE [None]
